FAERS Safety Report 11942740 (Version 1)
Quarter: 2016Q1

REPORT INFORMATION
  Report Type: Spontaneous
  Country: US (occurrence: US)
  Receive Date: 20160125
  Receipt Date: 20160125
  Transmission Date: 20160526
  Serious: No
  Sender: FDA-Public Use
  Company Number: US-UNITED THERAPEUTICS-UNT-2015-007388

PATIENT
  Sex: Female
  Weight: 69.39 kg

DRUGS (5)
  1. REMODULIN [Suspect]
     Active Substance: TREPROSTINIL
     Indication: PULMONARY ARTERIAL HYPERTENSION
     Dosage: 0.075 ?G/KG/MIN, CONTINUING
     Route: 058
     Dates: start: 20100107
  2. ADEMPAS [Concomitant]
     Active Substance: RIOCIGUAT
     Indication: PRODUCT USED FOR UNKNOWN INDICATION
  3. WARFARIN [Concomitant]
     Active Substance: WARFARIN
     Indication: PRODUCT USED FOR UNKNOWN INDICATION
  4. OPSUMIT [Concomitant]
     Active Substance: MACITENTAN
     Indication: PRODUCT USED FOR UNKNOWN INDICATION
  5. REMODULIN [Suspect]
     Active Substance: TREPROSTINIL
     Dosage: 0.075 ?G/KG/MIN, CONTINUING
     Route: 058
     Dates: start: 20100120

REACTIONS (6)
  - Infusion site discharge [Unknown]
  - Infusion site pain [Unknown]
  - Constipation [Not Recovered/Not Resolved]
  - Pyrexia [Unknown]
  - Infusion site oedema [Unknown]
  - Infusion site infection [Unknown]
